FAERS Safety Report 15314119 (Version 1)
Quarter: 2018Q3

REPORT INFORMATION
  Report Type: Other
  Country: NL (occurrence: NL)
  Receive Date: 20180824
  Receipt Date: 20180824
  Transmission Date: 20181010
  Serious: Yes (Other)
  Sender: FDA-Public Use
  Company Number: NL-APOTEX-2018AP019610

PATIENT
  Age: 26 Year
  Sex: Male
  Weight: 81 kg

DRUGS (2)
  1. BUDESONIDE. [Suspect]
     Active Substance: BUDESONIDE
     Indication: RHINITIS ALLERGIC
     Dosage: 200 ?G, 4 TIMES DAILY 1 INHALATION
     Route: 065
     Dates: start: 20170520, end: 20171020
  2. BUDESONIDE. [Suspect]
     Active Substance: BUDESONIDE
     Indication: ASTHMA
     Dosage: TWICE DAILY 100 MICROGRAM NOSE SPRAY IN EACH NOSTRIL
     Route: 045
     Dates: start: 20170520, end: 20171020

REACTIONS (7)
  - Laryngitis [Recovered/Resolved]
  - Listless [Recovered/Resolved]
  - Pneumonitis [Recovered/Resolved]
  - Insomnia [Recovered/Resolved]
  - Restlessness [Recovered/Resolved]
  - Pharyngitis [Recovered/Resolved]
  - Nervousness [Recovered/Resolved]

NARRATIVE: CASE EVENT DATE: 20170620
